FAERS Safety Report 7260219-1 (Version None)
Quarter: 2011Q1

REPORT INFORMATION
  Report Type: 
  Country: None (occurrence: None)
  Receive Date: 20110130
  Receipt Date: 20100908
  Transmission Date: 20110831
  Serious: No
  Sender: FDA-Public Use
  Company Number: US-ABBOTT-10P-163-0669842-00

PATIENT
  Age: 39 Year
  Sex: Female

DRUGS (8)
  1. ALLEGRA [Concomitant]
     Indication: HYPERSENSITIVITY
  2. FLONASE [Concomitant]
     Indication: HYPERSENSITIVITY
     Route: 045
  3. PEPCID [Concomitant]
     Indication: PRODUCT USED FOR UNKNOWN INDICATION
     Dosage: OTC
  4. HYOSCYAMINE [Concomitant]
     Indication: RECTAL SPASM
  5. HUMIRA [Suspect]
     Indication: CROHN'S DISEASE
     Dates: start: 20100831
  6. PREDNISONE [Concomitant]
     Indication: PRODUCT USED FOR UNKNOWN INDICATION
  7. PENTASA [Concomitant]
     Indication: CROHN'S DISEASE
  8. HYOSCYAMINE [Concomitant]
     Indication: GASTROINTESTINAL PAIN

REACTIONS (3)
  - TENDERNESS [None]
  - INAPPROPRIATE SCHEDULE OF DRUG ADMINISTRATION [None]
  - RASH PAPULAR [None]
